FAERS Safety Report 21924697 (Version 2)
Quarter: 2023Q2

REPORT INFORMATION
  Report Type: Spontaneous
  Country: JP (occurrence: JP)
  Receive Date: 20230130
  Receipt Date: 20230407
  Transmission Date: 20230721
  Serious: Yes (Other)
  Sender: FDA-Public Use
  Company Number: JP-002147023-NVSJ2023JP002119

PATIENT
  Age: 41 Year
  Sex: Female
  Weight: 54.3 kg

DRUGS (5)
  1. LIDOCAINE [Suspect]
     Active Substance: LIDOCAINE
     Indication: Epidural anaesthesia
     Dosage: 10 ML
     Route: 008
  2. LIDOCAINE [Suspect]
     Active Substance: LIDOCAINE
     Dosage: 4 ML
     Route: 008
  3. THIAMYLAL SODIUM [Suspect]
     Active Substance: THIAMYLAL SODIUM
     Indication: General anaesthesia
     Dosage: 300 MG
     Route: 065
  4. ROCURONIUM BROMIDE [Suspect]
     Active Substance: ROCURONIUM BROMIDE
     Indication: Endotracheal intubation
     Dosage: 50 MG
     Route: 065
  5. SEVOFLURANE [Suspect]
     Active Substance: SEVOFLURANE
     Indication: Maintenance of anaesthesia
     Dosage: UNK
     Route: 065

REACTIONS (2)
  - Premature delivery [Unknown]
  - Maternal exposure during delivery [Unknown]
